FAERS Safety Report 10713119 (Version 1)
Quarter: 2015Q1

REPORT INFORMATION
  Report Type: Spontaneous
  Country: US (occurrence: None)
  Receive Date: 20150114
  Receipt Date: 20150114
  Transmission Date: 20150721
  Serious: Yes (Disabling)
  Sender: FDA-Public Use
  Company Number: None

PATIENT
  Age: 4 Year
  Sex: Male
  Weight: 9.07 kg

DRUGS (2)
  1. POLYETHYLENE GLYCOL 3350. [Suspect]
     Active Substance: POLYETHYLENE GLYCOL 3350
     Indication: HYPOTONIA
     Dosage: 1 CAPFUL ONCE DAILY TAKEN BY MOUTH
     Route: 048
     Dates: start: 20100901, end: 20140205
  2. POLYETHYLENE GLYCOL 3350. [Suspect]
     Active Substance: POLYETHYLENE GLYCOL 3350
     Indication: CONSTIPATION
     Dosage: 1 CAPFUL ONCE DAILY TAKEN BY MOUTH
     Route: 048
     Dates: start: 20100901, end: 20140205

REACTIONS (11)
  - Failure to thrive [None]
  - Skin disorder [None]
  - Nervous system disorder [None]
  - Eye movement disorder [None]
  - Seizure like phenomena [None]
  - Incorrect drug administration duration [None]
  - Abnormal behaviour [None]
  - Laboratory test abnormal [None]
  - Autism [None]
  - Tic [None]
  - Malaise [None]

NARRATIVE: CASE EVENT DATE: 20150105
